FAERS Safety Report 13536280 (Version 1)
Quarter: 2017Q2

REPORT INFORMATION
  Report Type: Spontaneous
  Country: US (occurrence: US)
  Receive Date: 20170511
  Receipt Date: 20170511
  Transmission Date: 20170830
  Serious: Yes (Other)
  Sender: FDA-Public Use
  Company Number: None

PATIENT
  Age: 72 Year
  Sex: Female
  Weight: 73.8 kg

DRUGS (7)
  1. VITAMIN B12 [Concomitant]
     Active Substance: CYANOCOBALAMIN
  2. VITAMIN D [Concomitant]
     Active Substance: CHOLECALCIFEROL
  3. ASPIRIN. [Concomitant]
     Active Substance: ASPIRIN
  4. LOSARTAN POT 100MG [Suspect]
     Active Substance: LOSARTAN POTASSIUM
     Indication: HYPERTENSION
     Dosage: ?          QUANTITY:1 TABLET(S);?
     Route: 048
     Dates: end: 20170506
  5. VALIUM [Concomitant]
     Active Substance: DIAZEPAM
  6. POTASSIUM [Concomitant]
     Active Substance: POTASSIUM
  7. FISH OIL [Concomitant]
     Active Substance: FISH OIL

REACTIONS (8)
  - Fluid retention [None]
  - Dyspnoea [None]
  - Back pain [None]
  - Headache [None]
  - Blood pressure increased [None]
  - Formication [None]
  - Nausea [None]
  - Diarrhoea [None]

NARRATIVE: CASE EVENT DATE: 20170506
